FAERS Safety Report 9911619 (Version 2)
Quarter: 2014Q2

REPORT INFORMATION
  Report Type: Spontaneous
  Country: AR (occurrence: AR)
  Receive Date: 20140219
  Receipt Date: 20140423
  Transmission Date: 20141212
  Serious: Yes (Other)
  Sender: FDA-Public Use
  Company Number: PHHY2014AR019482

PATIENT
  Sex: Male

DRUGS (6)
  1. TEGRETOL [Suspect]
     Indication: CEREBELLAR ATAXIA
     Dosage: 33 ML, DAILY
     Route: 048
     Dates: start: 2010
  2. TEGRETOL [Suspect]
     Indication: CEREBRAL PALSY
  3. OLANZAPINE [Concomitant]
     Dosage: UNK UKN, UNK
  4. QUETIAPINE [Concomitant]
     Dosage: UNK UKN, UNK
  5. LORAZEPAM [Concomitant]
     Dosage: UNK UKN, UNK
  6. DEXTROSE [Concomitant]
     Dosage: UNK UKN, UNK

REACTIONS (2)
  - Hypokinesia [Unknown]
  - Pneumonia [Recovered/Resolved]
